FAERS Safety Report 9650754 (Version 1)
Quarter: 2013Q4

REPORT INFORMATION
  Report Type: Spontaneous
  Country: CA (occurrence: CA)
  Receive Date: 20131029
  Receipt Date: 20131029
  Transmission Date: 20140711
  Serious: Yes (Other)
  Sender: FDA-Public Use
  Company Number: CA-ROCHE-1292776

PATIENT
  Age: 62 Year
  Sex: Female

DRUGS (3)
  1. NAPROXEN [Suspect]
     Indication: PRODUCT USED FOR UNKNOWN INDICATION
     Dosage: THERAPY DURATION: 3.0 DAYS
     Route: 048
  2. DIMENHYDRINATE [Concomitant]
     Route: 065
  3. OXYCOCET [Concomitant]
     Route: 065

REACTIONS (3)
  - Anuria [Recovered/Resolved]
  - Renal failure acute [Recovered/Resolved]
  - Weight increased [Recovered/Resolved]
